FAERS Safety Report 5076206-8 (Version None)
Quarter: 2006Q3

REPORT INFORMATION
  Report Type: 
  Country: None (occurrence: None)
  Receive Date: 20060725
  Receipt Date: 20060315
  Transmission Date: 20061208
  Serious: No
  Sender: FDA-Public Use
  Company Number: 200611669BWH

PATIENT
  Age: 64 Year
  Sex: Female

DRUGS (9)
  1. NEXAVAR [Suspect]
     Indication: RENAL CELL CARCINOMA STAGE UNSPECIFIED
     Dosage: 400 MG, BID, ORAL
     Route: 048
     Dates: start: 20060206
  2. CIPRO [Suspect]
     Indication: URINARY TRACT INFECTION
     Dosage: 500 MG, BID, ORAL
  3. PHENAZOPYRIDINE HCL TAB [Suspect]
     Indication: URINARY TRACT INFECTION
  4. PREMARIN [Concomitant]
  5. LIPITOR [Concomitant]
  6. CALCIUM GLUCONATE [Concomitant]
  7. ASPIRIN [Concomitant]
  8. B COMPLEX [B3, B6, B2, B1 HCL] [Concomitant]
  9. GLUCOSAMINE [Concomitant]

REACTIONS (3)
  - RASH [None]
  - RASH GENERALISED [None]
  - URINARY TRACT INFECTION [None]
